FAERS Safety Report 4612097-4 (Version None)
Quarter: 2005Q2

REPORT INFORMATION
  Report Type: 
  Country: None (occurrence: None)
  Receive Date: 20050308
  Receipt Date: 20050124
  Transmission Date: 20051028
  Serious: Yes (Other)
  Sender: FDA-Public Use
  Company Number: 2004UW26053

PATIENT
  Age: 74 Year
  Sex: Male
  Weight: 92.986 kg

DRUGS (8)
  1. CRESTOR [Suspect]
     Indication: BLOOD CHOLESTEROL INCREASED
     Dosage: 20 MG DAILY PO
     Route: 048
  2. SAW PALMETTO [Concomitant]
  3. ASPIRIN [Concomitant]
  4. FISH OIL [Concomitant]
  5. COZAAR [Concomitant]
  6. NORVASC [Concomitant]
  7. PROTONIX [Concomitant]
  8. TOPROL-XL [Concomitant]

REACTIONS (1)
  - HAEMATURIA [None]
